FAERS Safety Report 5279939-3 (Version None)
Quarter: 2007Q1

REPORT INFORMATION
  Report Type: 
  Country: None (occurrence: None)
  Receive Date: 20070327
  Receipt Date: 20070327
  Transmission Date: 20070707
  Serious: Yes (Hospitalization)
  Sender: FDA-Public Use
  Company Number: None

PATIENT
  Age: 59 Year
  Sex: Male
  Weight: 60 kg

DRUGS (9)
  1. LISINOPRIL [Suspect]
     Indication: HYPERTENSION
     Dosage: 40 MG DAILY PO
     Route: 048
     Dates: start: 20060914, end: 20070312
  2. ALUBUTEROL [Concomitant]
  3. ATENOLOL [Concomitant]
  4. CALCIUM/VIT D [Concomitant]
  5. CYCLOBENZAPRINE HCL [Concomitant]
  6. FELODIPINE [Concomitant]
  7. FLUOCINONIDE [Concomitant]
  8. MOEMTASONE [Concomitant]
  9. M.V.I. [Concomitant]

REACTIONS (1)
  - ANGIOEDEMA [None]
